FAERS Safety Report 10038726 (Version 2)
Quarter: 2014Q1

REPORT INFORMATION
  Report Type: Spontaneous
  Country: US (occurrence: US)
  Receive Date: 20140326
  Receipt Date: 20140326
  Transmission Date: 20141002
  Serious: Yes (Other)
  Sender: FDA-Public Use
  Company Number: US-GE HEALTHCARE MEDICAL DIAGNOSTICS-OSCN-PR-0802S-0089

PATIENT
  Age: 46 Year
  Sex: Female

DRUGS (7)
  1. OMNISCAN [Suspect]
     Indication: PRODUCT USED FOR UNKNOWN INDICATION
     Dates: start: 19980424, end: 19980424
  2. OMNISCAN [Suspect]
     Indication: PRODUCT USED FOR UNKNOWN INDICATION
     Dates: start: 20050227, end: 20050227
  3. OMNISCAN [Suspect]
     Indication: KIDNEY TRANSPLANT REJECTION
     Route: 042
     Dates: start: 20050228, end: 20050228
  4. OMNISCAN [Suspect]
     Indication: SKIN DISORDER
     Route: 042
     Dates: start: 20050429, end: 20050429
  5. EPOETIN [Concomitant]
  6. PREDNISONE [Concomitant]
  7. PROCRIT [Concomitant]

REACTIONS (1)
  - Nephrogenic systemic fibrosis [Not Recovered/Not Resolved]
